FAERS Safety Report 19828293 (Version 17)
Quarter: 2022Q1

REPORT INFORMATION
  Report Type: Report from Study
  Country: KR (occurrence: None)
  Receive Date: 20210914
  Receipt Date: 20220324
  Transmission Date: 20220423
  Serious: Yes (Hospitalization)
  Sender: FDA-Public Use
  Company Number: KR-EISAI MEDICAL RESEARCH-EC-2021-099350

PATIENT
  Age: 51 Year
  Sex: Male
  Weight: 53.5 kg

DRUGS (20)
  1. LENVATINIB [Suspect]
     Active Substance: LENVATINIB
     Indication: Oesophageal squamous cell carcinoma metastatic
     Route: 048
     Dates: start: 20210825, end: 20210906
  2. LENVATINIB [Suspect]
     Active Substance: LENVATINIB
     Route: 048
     Dates: start: 20210914
  3. PEMBROLIZUMAB [Suspect]
     Active Substance: PEMBROLIZUMAB
     Indication: Oesophageal squamous cell carcinoma metastatic
     Route: 042
     Dates: start: 20210825, end: 20210825
  4. PEMBROLIZUMAB [Suspect]
     Active Substance: PEMBROLIZUMAB
     Route: 042
     Dates: start: 20211006, end: 20211006
  5. PEMBROLIZUMAB [Suspect]
     Active Substance: PEMBROLIZUMAB
     Route: 042
     Dates: start: 20211207
  6. CISPLATIN [Suspect]
     Active Substance: CISPLATIN
     Indication: Oesophageal squamous cell carcinoma metastatic
     Route: 042
     Dates: start: 20210825, end: 20210825
  7. FLUOROURACIL [Suspect]
     Active Substance: FLUOROURACIL
     Indication: Oesophageal squamous cell carcinoma metastatic
     Dosage: DOSE 200 MG/M2/DAY DAYS 1-5
     Route: 042
     Dates: start: 20210825, end: 20210829
  8. FLUOROURACIL [Suspect]
     Active Substance: FLUOROURACIL
     Dosage: DOSE 200 MG/M2/DAY DAYS 1-5
     Route: 042
     Dates: start: 20211006
  9. OMACOR [Concomitant]
     Active Substance: OMEGA-3-ACID ETHYL ESTERS
     Dates: start: 20201230
  10. LANSOPRAZOLE [Concomitant]
     Active Substance: LANSOPRAZOLE
     Dates: start: 20210824
  11. MANNITOL [Concomitant]
     Active Substance: MANNITOL
     Route: 042
     Dates: start: 20210825, end: 20210825
  12. METOCLOPRAMIDE HYDROCHLORIDE [Concomitant]
     Active Substance: METOCLOPRAMIDE HYDROCHLORIDE
     Dates: start: 20210825, end: 20210830
  13. ALOXI [Concomitant]
     Active Substance: PALONOSETRON HYDROCHLORIDE
     Route: 042
     Dates: start: 20210825, end: 20210825
  14. EMEND (FOSAPREPITANT DIMEGLUMINE) [Concomitant]
     Active Substance: FOSAPREPITANT DIMEGLUMINE
     Route: 042
     Dates: start: 20210825, end: 20210825
  15. DEXAMETHASONE [Concomitant]
     Active Substance: DEXAMETHASONE
     Route: 042
     Dates: start: 20210825, end: 20210825
  16. MEGACE F [Concomitant]
     Dates: start: 20210827, end: 20210829
  17. TANTUM [BENZYDAMINE HYDROCHLORIDE] [Concomitant]
     Dates: start: 20210830, end: 20211011
  18. HEXAMEDIN [Concomitant]
     Dates: start: 20210830, end: 20211011
  19. DEXTROSE + NAK [Concomitant]
     Route: 042
     Dates: start: 20210825, end: 20210825
  20. PERIOLIMEL [Concomitant]
     Route: 042
     Dates: start: 20210826, end: 20210829

REACTIONS (1)
  - Acute kidney injury [Recovered/Resolved]

NARRATIVE: CASE EVENT DATE: 20210907
